FAERS Safety Report 4936430-9 (Version None)
Quarter: 2006Q1

REPORT INFORMATION
  Report Type: 
  Country: None (occurrence: None)
  Receive Date: 20060307
  Receipt Date: 20060224
  Transmission Date: 20060701
  Serious: Yes (Other)
  Sender: FDA-Public Use
  Company Number: NSADSS2002046205

PATIENT
  Sex: Female
  Weight: 68.95 kg

DRUGS (12)
  1. REMICADE [Suspect]
     Dosage: TOTAL OF 7-8 INFUSIONS
     Route: 041
  2. REMICADE [Suspect]
     Indication: RHEUMATOID ARTHRITIS
     Route: 041
  3. ANTI-TUBERCULIN THERAPY [Suspect]
     Indication: TUBERCULOSIS
  4. BIAXIN [Concomitant]
  5. PREDNISONE [Concomitant]
     Indication: RHEUMATOID ARTHRITIS
  6. TOPROL-XL [Concomitant]
  7. PLAVIX [Concomitant]
  8. NEXIUM [Concomitant]
  9. CLONIDINE [Concomitant]
  10. TYLENOL W/ CODEINE NO. 3 [Concomitant]
  11. TYLENOL W/ CODEINE NO. 3 [Concomitant]
  12. PREVACID [Concomitant]

REACTIONS (5)
  - CONFUSIONAL STATE [None]
  - HEPATITIS [None]
  - MEMORY IMPAIRMENT [None]
  - PULMONARY TUBERCULOSIS [None]
  - SKIN ULCER [None]
